FAERS Safety Report 19884872 (Version 1)
Quarter: 2021Q3

REPORT INFORMATION
  Report Type: Spontaneous
  Country: US (occurrence: US)
  Receive Date: 20210927
  Receipt Date: 20210927
  Transmission Date: 20211014
  Serious: Yes (Disabling, Other)
  Sender: FDA-Public Use
  Company Number: None

PATIENT
  Age: 67 Year
  Sex: Male
  Weight: 107.1 kg

DRUGS (1)
  1. RED EMERGENCY GLUCAGON KIT [Suspect]
     Active Substance: GLUCAGON

REACTIONS (3)
  - Therapeutic product effect decreased [None]
  - Seizure [None]
  - Headache [None]

NARRATIVE: CASE EVENT DATE: 20200422
